FAERS Safety Report 9305487 (Version 1)
Quarter: 2013Q2

REPORT INFORMATION
  Report Type: Spontaneous
  Country: US (occurrence: None)
  Receive Date: 20130520
  Receipt Date: 20130520
  Transmission Date: 20140414
  Serious: Yes (Disabling, Other)
  Sender: FDA-Public Use
  Company Number: ACO_36132_2013

PATIENT
  Sex: Female

DRUGS (1)
  1. AMPYRA [Suspect]
     Indication: PRODUCT USED FOR UNKNOWN INDICATION
     Dates: start: 20120227, end: 2013

REACTIONS (6)
  - Renal failure [None]
  - Abasia [None]
  - Vertigo [None]
  - Blood iron decreased [None]
  - Nasopharyngitis [None]
  - Asthenia [None]
